FAERS Safety Report 6036422-5 (Version None)
Quarter: 2009Q1

REPORT INFORMATION
  Report Type: 
  Country: None (occurrence: None)
  Receive Date: 20090112
  Receipt Date: 20090106
  Transmission Date: 20090719
  Serious: Yes (Other)
  Sender: FDA-Public Use
  Company Number: 1000003415

PATIENT
  Age: 71 Year
  Sex: Female

DRUGS (7)
  1. NAMENDA [Suspect]
     Dosage: UNKNOWN, ORAL
     Route: 048
  2. COREG [Concomitant]
  3. CALCIUM [Concomitant]
  4. FOSAMAX [Concomitant]
  5. LISINOPRIL [Concomitant]
  6. LIPITOR [Concomitant]
  7. ARICEPT [Concomitant]

REACTIONS (1)
  - TORSADE DE POINTES [None]
